FAERS Safety Report 15099456 (Version 2)
Quarter: 2018Q3

REPORT INFORMATION
  Report Type: Spontaneous
  Country: US (occurrence: US)
  Receive Date: 20180702
  Receipt Date: 20180702
  Transmission Date: 20181010
  Serious: Yes (Other)
  Sender: FDA-Public Use
  Company Number: PHHY2018US030278

PATIENT
  Age: 37 Year
  Sex: Male

DRUGS (2)
  1. PREDNISOLONE ACETATE. [Suspect]
     Active Substance: PREDNISOLONE ACETATE
     Indication: IRITIS
     Dosage: 1 %, QH (GIVEN IN THE SUB TENON SPACE OF THE LEFT EYE)
     Route: 065
  2. TRIAMCINOLONE ACETONIDE. [Suspect]
     Active Substance: TRIAMCINOLONE ACETONIDE
     Indication: IRITIS
     Dosage: 1 ML (40 MG/ML) PERIOCULAR INJECTION, UNK (GIVEN IN THE SUB TENON SPACE OF THE LEFT EYE)
     Route: 065

REACTIONS (5)
  - Serous retinal detachment [Recovered/Resolved]
  - Subretinal fluid [Recovered/Resolved]
  - Therapeutic response decreased [Unknown]
  - Chorioretinopathy [Recovered/Resolved]
  - Product use in unapproved indication [Unknown]
